FAERS Safety Report 21445111 (Version 1)
Quarter: 2022Q4

REPORT INFORMATION
  Report Type: Spontaneous
  Country: FR (occurrence: FR)
  Receive Date: 20221012
  Receipt Date: 20221012
  Transmission Date: 20230113
  Serious: Yes (Other)
  Sender: FDA-Public Use
  Company Number: FR-CHEPLA-2022008790

PATIENT
  Age: 69 Year
  Sex: Female

DRUGS (7)
  1. CLONAZEPAM [Suspect]
     Active Substance: CLONAZEPAM
     Indication: Generalised tonic-clonic seizure
     Route: 042
  2. LEVETIRACETAM [Suspect]
     Active Substance: LEVETIRACETAM
     Indication: Generalised tonic-clonic seizure
     Dosage: BID?DAILY DOSE: 1000 MILLIGRAM
     Route: 042
  3. PHENYTOIN [Suspect]
     Active Substance: PHENYTOIN
     Indication: Generalised tonic-clonic seizure
     Route: 042
  4. CABOZANTINIB [Concomitant]
     Active Substance: CABOZANTINIB
     Indication: Clear cell renal cell carcinoma
     Dosage: DAILY DOSE: 40 MILLIGRAM
     Route: 048
  5. CABOZANTINIB [Concomitant]
     Active Substance: CABOZANTINIB
     Indication: Clear cell renal cell carcinoma
     Dosage: TWO WEEKS LATER, CABOZANTINIB DOSE WAS INCREASED?DAILY DOSE: 60 MILLIGRAM
     Route: 048
  6. SUNITINIB [Concomitant]
     Active Substance: SUNITINIB
     Indication: Clear cell renal cell carcinoma
     Dosage: TWO CYCLES
  7. NIVOLUMAB [Concomitant]
     Active Substance: NIVOLUMAB
     Indication: Clear cell renal cell carcinoma

REACTIONS (1)
  - Epilepsy [Unknown]
